FAERS Safety Report 9063837 (Version 1)
Quarter: 2013Q1

REPORT INFORMATION
  Report Type: Report from Study
  Country: US (occurrence: US)
  Receive Date: 20130131
  Receipt Date: 20130131
  Transmission Date: 20140127
  Serious: No
  Sender: FDA-Public Use
  Company Number: US-ABBOTT-12P-163-1017421-00

PATIENT
  Age: 22 Year
  Sex: Female

DRUGS (8)
  1. HUMIRA [Suspect]
     Indication: PRODUCT USED FOR UNKNOWN INDICATION
     Dates: start: 20121030
  2. LIALDA [Concomitant]
     Indication: COLITIS ULCERATIVE
     Dosage: 4 TABS DAILY
  3. AZATHIOPRINE [Concomitant]
     Indication: COLITIS ULCERATIVE
     Dosage: 2 TABS DAILY
  4. SERTRALINE [Concomitant]
     Indication: ANXIETY
     Dosage: DAILY
  5. ADVAIR [Concomitant]
     Indication: ASTHMA
     Dosage: DAILY
  6. GENERESS FE [Concomitant]
     Indication: CONTRACEPTION
     Dosage: 1 DAILY
  7. VITAMIN C [Concomitant]
     Indication: PRODUCT USED FOR UNKNOWN INDICATION
  8. MULTIVITAMINS [Concomitant]
     Indication: PRODUCT USED FOR UNKNOWN INDICATION

REACTIONS (1)
  - Injection site pain [Recovered/Resolved]
